FAERS Safety Report 13793144 (Version 2)
Quarter: 2024Q2

REPORT INFORMATION
  Report Type: Spontaneous
  Country: US (occurrence: US)
  Receive Date: 20170726
  Receipt Date: 20240404
  Transmission Date: 20240716
  Serious: Yes (Hospitalization, Other)
  Sender: FDA-Public Use
  Company Number: None

PATIENT
  Age: 39 Year
  Sex: Male

DRUGS (16)
  1. TACROLIMUS [Suspect]
     Active Substance: TACROLIMUS
     Indication: Transplant
     Dosage: UNK (TITRATED TO A GOAL TROUGH LEVEL OF 8-10 NG/ML)
     Route: 065
  2. TACROLIMUS [Suspect]
     Active Substance: TACROLIMUS
     Indication: Immunosuppression
     Dosage: UNK
     Route: 061
  3. TACROLIMUS [Suspect]
     Active Substance: TACROLIMUS
     Dosage: 1.5 MG, BID
     Route: 065
  4. MYCOPHENOLATE MOFETIL [Suspect]
     Active Substance: MYCOPHENOLATE MOFETIL
     Indication: Transplant
     Dosage: 2 GRAM, QD (1 G, BID)
     Route: 042
  5. MYCOPHENOLATE MOFETIL [Suspect]
     Active Substance: MYCOPHENOLATE MOFETIL
     Indication: Immunosuppression
     Dosage: 500 MG, BID
     Route: 065
  6. MYCOPHENOLATE MOFETIL [Suspect]
     Active Substance: MYCOPHENOLATE MOFETIL
     Dosage: 2 GRAM, QD (1 G, BID)
     Route: 065
  7. PREDNISOLONE [Suspect]
     Active Substance: PREDNISOLONE
     Indication: Transplant
     Dosage: UNK
     Route: 065
  8. PREDNISOLONE [Suspect]
     Active Substance: PREDNISOLONE
     Indication: Immunosuppression
     Dosage: 5 MG, QD
     Route: 065
  9. THYMOCYTE IMMUNE GLOBULIN NOS [Suspect]
     Active Substance: THYMOCYTE IMMUNE GLOBULIN NOS
     Indication: Transplant
     Dosage: 1.5 MG/KG, PER DAY (3 DOSES OF 1.5 MG/KG/DAY)
     Route: 065
  10. THYMOCYTE IMMUNE GLOBULIN NOS [Suspect]
     Active Substance: THYMOCYTE IMMUNE GLOBULIN NOS
     Indication: Immunosuppression
     Dosage: UNK
     Route: 065
  11. METHYLPREDNISOLONE [Suspect]
     Active Substance: METHYLPREDNISOLONE
     Indication: Transplant
     Dosage: UNK, CYCLICAL
     Route: 042
  12. METHYLPREDNISOLONE [Suspect]
     Active Substance: METHYLPREDNISOLONE
     Dosage: UNK, CYCLICAL (2 CYCLES)
     Route: 065
  13. IMMUNE GLOBULIN NOS [Suspect]
     Active Substance: IMMUNE GLOBULIN NOS
     Indication: Transplant
     Dosage: UNK, CYCLICAL (2 CYCLES)
     Route: 042
  14. IMMUNE GLOBULIN NOS [Suspect]
     Active Substance: IMMUNE GLOBULIN NOS
     Dosage: UNK
     Route: 042
  15. VALGANCICLOVIR [Concomitant]
     Active Substance: VALGANCICLOVIR
     Indication: Antiviral prophylaxis
     Dosage: 900 MILLIGRAM, QD
     Route: 065
  16. VALGANCICLOVIR [Concomitant]
     Active Substance: VALGANCICLOVIR
     Dosage: UNK, DOSE INCREASED
     Route: 065

REACTIONS (9)
  - Guillain-Barre syndrome [Recovered/Resolved]
  - Areflexia [Recovered/Resolved]
  - Muscular weakness [Recovered/Resolved]
  - Fall [Recovered/Resolved]
  - Hypoaesthesia [Recovered/Resolved]
  - Peripheral sensory neuropathy [Recovered/Resolved]
  - Paraesthesia [Recovered/Resolved]
  - Cytomegalovirus viraemia [Recovered/Resolved]
  - Off label use [Unknown]
